FAERS Safety Report 10395558 (Version 1)
Quarter: 2014Q3

REPORT INFORMATION
  Report Type: Spontaneous
  Country: US (occurrence: None)
  Receive Date: 20140819
  Receipt Date: 20140819
  Transmission Date: 20150326
  Serious: Yes (Hospitalization)
  Sender: FDA-Public Use
  Company Number: None

PATIENT
  Age: 76 Year
  Sex: Male
  Weight: 80.4 kg

DRUGS (1)
  1. ELOXATIN [Suspect]
     Active Substance: OXALIPLATIN

REACTIONS (3)
  - Pulmonary embolism [None]
  - Dyspnoea [None]
  - Abdominal pain upper [None]

NARRATIVE: CASE EVENT DATE: 20140814
